FAERS Safety Report 8194099-7 (Version None)
Quarter: 2012Q1

REPORT INFORMATION
  Report Type: 
  Country: None (occurrence: None)
  Receive Date: 20120308
  Receipt Date: 20120227
  Transmission Date: 20120608
  Serious: Yes (Life-Threatening, Hospitalization, Other)
  Sender: FDA-Public Use
  Company Number: KR-ABBOTT-11P-090-0845596-00

PATIENT
  Age: 67 Year
  Sex: Female

DRUGS (140)
  1. RALTEGRAVIR [Concomitant]
     Dosage: 800 MG DAILY
     Dates: start: 20110819, end: 20111007
  2. ARMODAFINIL [Concomitant]
     Indication: ORAL CANDIDIASIS
     Dosage: 100 MG DAILY
     Route: 048
     Dates: start: 20110516, end: 20110616
  3. ARMODAFINIL [Concomitant]
     Dosage: 10MG/ML 35ML
     Route: 048
     Dates: start: 20110810
  4. DAIHAN POTASSUIM CHOLORIDE [Concomitant]
     Dosage: 3 VIALS DAILY, 40 INJ 3G/20ML
     Route: 042
     Dates: start: 20110919, end: 20110920
  5. VINCRISTINE PHARMACHEMIE [Concomitant]
     Indication: B-CELL LYMPHOMA
     Dosage: 1.5 MG DAILY
     Route: 042
     Dates: start: 20110525, end: 20110525
  6. MEGESTROL ACETATE [Concomitant]
     Indication: DECREASED APPETITE
     Dosage: 1 PACK
     Route: 048
     Dates: start: 20110529, end: 20110529
  7. SODIUM BICARBONATE [Concomitant]
     Indication: GASTRIC ULCER
     Dosage: 3 MG DAILY
     Route: 048
     Dates: start: 20110529, end: 20110627
  8. GREENCROSS ALBUMIN [Concomitant]
     Indication: SUPPLEMENTATION THERAPY
     Dosage: 20% 0.2G/ML 100ML
     Route: 042
     Dates: start: 20110604, end: 20110604
  9. GREENCROSS ALBUMIN [Concomitant]
     Dosage: 20% 0.2G/ML  DAILY DOSE 100ML
     Route: 042
     Dates: start: 20111010, end: 20111011
  10. FAMOTIDINE [Concomitant]
     Indication: PROPHYLAXIS
     Dosage: 20MG(VIAL) DAILY
     Route: 042
     Dates: start: 20111003, end: 20111012
  11. THIAMINE HCL [Concomitant]
     Indication: VITAMIN SUPPLEMENTATION
     Dosage: 100 MG DAILY
     Route: 042
     Dates: start: 20110617, end: 20110624
  12. TAMIPOOL [Concomitant]
     Indication: VITAMIN SUPPLEMENTATION
     Dosage: 1 VIAL
     Route: 042
     Dates: start: 20110720, end: 20110724
  13. CJ CALCIUM GLUCONATE [Concomitant]
     Dosage: 2G/20ML 20ML, 1 AMPOULE DAILY
     Route: 042
     Dates: start: 20111013, end: 20111013
  14. TRIDEL [Concomitant]
     Indication: B-CELL LYMPHOMA
  15. PLATELETS, CONCENTRATED [Concomitant]
     Dosage: 8 PACK
     Route: 042
     Dates: start: 20111031, end: 20111031
  16. DBPHARM PENTAMIDE ISETHIONATE [Concomitant]
     Indication: PROPHYLAXIS
  17. PENIRAMINE [Concomitant]
     Dosage: 4MG/2ML 2ML, 4MG DAILY
     Route: 042
     Dates: start: 20111025, end: 20111025
  18. LASIX [Concomitant]
     Dosage: 20MG/2ML, 10 MG DAILY
     Route: 042
     Dates: start: 20111018, end: 20111018
  19. MEZAGTAM [Concomitant]
     Indication: PROPHYLAXIS
     Dosage: 3 GRAMS DAILY
     Route: 042
     Dates: start: 20111020, end: 20111025
  20. LEVOFEXIN [Concomitant]
     Indication: PROPHYLAXIS
     Dosage: 750 MG DAILY
     Route: 042
     Dates: start: 20111020, end: 20111025
  21. FAMOTIDINE [Concomitant]
     Indication: PROPHYLAXIS AGAINST GASTROINTESTINAL ULCER
     Dosage: DAILY DOSE 40 MG
     Route: 048
     Dates: start: 20110705, end: 20110713
  22. MACPERAN [Concomitant]
     Indication: PROPHYLAXIS OF NAUSEA AND VOMITING
     Dosage: 15 MG DAILY
     Route: 048
     Dates: start: 20110524, end: 20110604
  23. DAIHAN POTASSUIM CHOLORIDE [Concomitant]
     Dosage: 2 VIALS DAILY, 40 INJ 3G/20ML
     Route: 042
     Dates: start: 20110911, end: 20110913
  24. DAIHAN POTASSUIM CHOLORIDE [Concomitant]
     Dosage: 3 VIALS DAILY, 40 INJ 3G/20ML
     Route: 042
     Dates: start: 20110913, end: 20110915
  25. DAIHAN POTASSUIM CHOLORIDE [Concomitant]
     Dosage: 40INJ 3G/20ML, DAILY 5 AMPOULES
     Route: 042
     Dates: start: 20111004, end: 20111004
  26. DAIHAN POTASSUIM CHOLORIDE [Concomitant]
     Dosage: 40INJ 3G/20ML, DAILY 2 AMPOULES
     Route: 042
     Dates: start: 20111024, end: 20111024
  27. PHENIRAMINE [Concomitant]
     Dosage: 4MG/2ML, TOTAL DAILY DOSE: 4MG
     Route: 042
     Dates: start: 20110924, end: 20110928
  28. CYCLOPHOSPHAMIDE [Concomitant]
     Indication: B-CELL LYMPHOMA
     Dosage: 500MG INJ 500MG, 800MG DAILY
     Route: 042
     Dates: start: 20110525, end: 20110525
  29. SEPTRA [Concomitant]
  30. K-CONTIN CONTINUS [Concomitant]
     Dosage: TOTAL DAILY DOSE 5.4G
     Route: 048
     Dates: start: 20110927, end: 20110927
  31. TAMIPOOL [Concomitant]
     Dosage: 1 VIAL DAY
     Dates: start: 20110812
  32. CJ CALCIUM GLUCONATE [Concomitant]
     Dosage: 2G/20ML, 20ML, TOTAL DAILY DOSE 1 VIAL
     Route: 042
     Dates: start: 20111002, end: 20111004
  33. CJ CALCIUM GLUCONATE [Concomitant]
     Dosage: 2G/20ML 20ML, 2 AMPOULES DAILY
     Route: 042
     Dates: start: 20111010, end: 20111011
  34. CJ SODIUM CHLORIDE [Concomitant]
     Dosage: 2 VIALS, 2.34G/20ML
     Route: 042
     Dates: start: 20110822, end: 20110830
  35. MULTI-VITAMINS [Concomitant]
     Indication: VITAMIN SUPPLEMENTATION
     Dosage: ONE TAB DAILY
     Route: 048
     Dates: start: 20110830
  36. TRIDOL [Concomitant]
     Indication: CANCER PAIN
     Dosage: TOTAL DAILY DOSE 200 MG
     Route: 042
     Dates: start: 20110924, end: 20111012
  37. VANCOMYCIN HYDROCHLORIDE [Concomitant]
     Indication: PROPHYLAXIS
     Dosage: TOTAL DAILY DOSE 2G
     Route: 042
     Dates: start: 20110930, end: 20111013
  38. PENIRAMINE [Concomitant]
     Indication: TRANSFUSION
     Dosage: 4MG/2ML 2ML, 4MG DAILY
     Route: 042
     Dates: start: 20111009, end: 20111009
  39. KALETRA [Suspect]
     Dosage: 2 TABS, TWICE A DAY
     Route: 048
     Dates: start: 20110819, end: 20111007
  40. FAMOTIDINE [Concomitant]
     Indication: GASTRIC HAEMORRHAGE
     Dosage: DAILY DOSE 40 MG
     Route: 048
     Dates: start: 20111013
  41. ZITHROMAX [Concomitant]
     Indication: OPPORTUNISTIC INFECTION PROPHYLAXIS
     Dosage: 1000 MG ONCE A WEEK
     Route: 048
     Dates: start: 20110518, end: 20110525
  42. BEARSE [Concomitant]
     Indication: DYSPEPSIA
  43. DAIHAN POTASSUIM CHOLORIDE [Concomitant]
     Dosage: 3G/20ML, TOTAL DAILY DOSE 3 VIALS
     Route: 042
     Dates: start: 20110926, end: 20110926
  44. PHENIRAMINE [Concomitant]
     Dosage: 4MG/2ML 2ML
     Route: 042
     Dates: start: 20110615, end: 20110615
  45. EMEND [Concomitant]
     Indication: PROPHYLAXIS OF NAUSEA AND VOMITING
     Dosage: 80 MG DAILY
     Route: 048
     Dates: start: 20110527, end: 20110527
  46. NISORONE [Concomitant]
     Indication: B-CELL LYMPHOMA
     Dosage: 100 MG DAILY
     Route: 048
     Dates: start: 20110525, end: 20110529
  47. JEIL THIAMINE [Concomitant]
     Indication: VITAMIN SUPPLEMENTATION
     Dosage: 50MG/2ML, 50 MG DAILY
     Route: 042
     Dates: start: 20110721, end: 20110724
  48. K-CONTIN CONTINUS [Concomitant]
     Indication: MINERAL SUPPLEMENTATION
     Dosage: 1800 MG DAILY
     Route: 048
     Dates: start: 20110727, end: 20110802
  49. HANIL FLASYNIL [Concomitant]
     Indication: CLOSTRIDIUM DIFFICILE COLITIS
     Dosage: 1500 MG DAILY
     Route: 048
     Dates: start: 20110808
  50. CJ CALCIUM GLUCONATE [Concomitant]
     Indication: MINERAL SUPPLEMENTATION
     Dosage: 2G/20ML/20ML, 1 VIAL DAILY
     Dates: start: 20110812
  51. MASI [Concomitant]
     Indication: BLOOD MAGNESIUM DECREASED
     Dosage: 2G/20ML, 20ML, TOTAL DAILY DOSE 1 AMP
     Dates: start: 20111002, end: 20111002
  52. DBPHARM PENTAMIDE ISETHIONATE [Concomitant]
     Indication: PNEUMOCYSTIS JIROVECI PNEUMONIA
     Route: 042
     Dates: start: 20111004, end: 20111019
  53. PENIRAMINE [Concomitant]
     Indication: PREMEDICATION
     Dosage: 4MG/2ML 2ML, 4MG DAILY
     Route: 042
     Dates: start: 20111005, end: 20111005
  54. LASIX [Concomitant]
     Indication: FLUID IMBALANCE
     Dosage: 20MG/2ML, 10 MG DAILY
     Route: 042
     Dates: start: 20111009, end: 20111009
  55. LAMIVUDINE (EPIVIR HBV) [Concomitant]
     Indication: ANTIRETROVIRAL THERAPY
     Dosage: 300 MG DAILY
     Dates: start: 20110328, end: 20111007
  56. FAMOTIDINE [Concomitant]
     Indication: GASTRIC ULCER
     Dosage: 20 MG DAILY
     Route: 048
     Dates: start: 20110518, end: 20110602
  57. ARMODAFINIL [Concomitant]
     Dosage: 10MG/ML 35ML
     Route: 048
     Dates: start: 20110720, end: 20110720
  58. ZITHROMAX [Concomitant]
     Route: 048
     Dates: start: 20110713, end: 20110720
  59. DAIHAN POTASSUIM CHOLORIDE [Concomitant]
     Indication: PREMEDICATION
     Dosage: 40 INJ 3G/20ML
     Route: 042
     Dates: start: 20110524, end: 20110624
  60. DAIHAN POTASSUIM CHOLORIDE [Concomitant]
     Dosage: 40INJ 3G/20ML
     Route: 042
     Dates: start: 20110804, end: 20110805
  61. DAIHAN POTASSUIM CHOLORIDE [Concomitant]
     Dosage: 3G/20ML, TOTAL DAILY DOSE 6 AMP
     Route: 042
     Dates: start: 20111002, end: 20111003
  62. DAIHAN POTASSUIM CHOLORIDE [Concomitant]
     Dosage: 40INJ 3G/20ML, DAILY 2 AMPOULES
     Route: 042
     Dates: start: 20111007, end: 20111008
  63. DAIHAN POTASSUIM CHOLORIDE [Concomitant]
     Dosage: 40INJ 3G/20ML, DAILY 1 AMPOULE
     Route: 042
     Dates: start: 20111025, end: 20111025
  64. PHENIRAMINE [Concomitant]
     Dosage: 4MG/2ML 2ML
     Route: 042
     Dates: start: 20110613, end: 20110613
  65. PHENIRAMINE [Concomitant]
     Dosage: 4MG/2ML, TOTAL DAILY DOSE 4MG
     Route: 042
     Dates: start: 20110929, end: 20110929
  66. GREENCROSS ALBUMIN [Concomitant]
     Dosage: 20% 0.2G/ML  DAILY DOSE 100ML
     Route: 042
     Dates: start: 20111009, end: 20111009
  67. FAMOTIDINE [Concomitant]
     Indication: PROPHYLAXIS AGAINST GASTROINTESTINAL ULCER
     Dosage: 20MG(VIAL) DAILY
     Route: 042
     Dates: start: 20110616, end: 20110618
  68. GANCICLOVIR SODIUM [Concomitant]
     Indication: CYTOMEGALOVIRUS COLITIS
     Dosage: 400 MG DAILY
     Route: 042
     Dates: start: 20110616, end: 20110618
  69. CENTRUM [Concomitant]
     Indication: VITAMIN SUPPLEMENTATION
     Dosage: 1 TABLET DAILY
     Route: 048
     Dates: start: 20110725
  70. K-CONTIN CONTINUS [Concomitant]
     Dosage: 2400 MG DAILY DOSE
     Route: 048
     Dates: start: 20110811
  71. ACTONEL [Concomitant]
     Indication: OSTEOPOROSIS PROPHYLAXIS
     Dosage: 35 MG WEEKLY
     Route: 048
     Dates: start: 20110803
  72. STOGAR [Concomitant]
     Indication: PROPHYLAXIS AGAINST GASTROINTESTINAL ULCER
     Dosage: 20 MG DAILY
     Route: 048
     Dates: start: 20110809
  73. JW KCL [Concomitant]
     Indication: MINERAL SUPPLEMENTATION
     Dosage: 3G/20ML, 2 VIALS DAILY
     Dates: start: 20110812
  74. PHENIRAMINE [Concomitant]
     Indication: CHEMOTHERAPY
  75. TRIDOL [Concomitant]
     Indication: B-CELL LYMPHOMA
  76. TYLENOL ER [Concomitant]
     Indication: PREMEDICATION
     Dosage: TOTAL DAILY DOSE 1950 MG
     Route: 048
     Dates: start: 20110924, end: 20110928
  77. PANTOPRAZOLE SODIUM [Concomitant]
     Indication: PROPHYLAXIS AGAINST GASTROINTESTINAL ULCER
     Dosage: TOTAL DAILY DOSE 40 MG
     Route: 042
     Dates: start: 20111002, end: 20111002
  78. PHOSTEN [Concomitant]
     Indication: BLOOD POTASSIUM DECREASED
     Dosage: 136.1 MG/ML 20 ML, 1 AMPOULE DAILY ML
     Route: 042
     Dates: start: 20111004, end: 20111004
  79. PENIRAMINE [Concomitant]
     Dosage: 4MG/2ML 2ML, 4MG DAILY
     Route: 042
     Dates: start: 20111010, end: 20111011
  80. RALTEGRAVIR [Concomitant]
     Indication: ANTIRETROVIRAL THERAPY
     Dosage: 600 MG DAILY
     Dates: start: 20110617, end: 20110712
  81. ARMODAFINIL [Concomitant]
     Dosage: 10MG/ML 35ML
     Route: 048
     Dates: start: 20110529, end: 20110616
  82. DAIHAN POTASSUIM CHOLORIDE [Concomitant]
     Dosage: 2 VIALS DAILY, 40INJ 3G/20ML
     Route: 042
     Dates: start: 20110905, end: 20110905
  83. PHENIRAMINE [Concomitant]
     Dosage: 4MG/2ML 2ML
     Route: 042
     Dates: start: 20110617, end: 20110617
  84. ALOXI [Concomitant]
     Indication: PROPHYLAXIS OF NAUSEA AND VOMITING
     Dosage: 0.25 MG DAILY
     Route: 042
     Dates: start: 20110525, end: 20110525
  85. GANCICLOVIR SODIUM [Concomitant]
     Dosage: 200 MG DAILY DOSE
     Route: 042
     Dates: start: 20110619, end: 20110703
  86. MVH [Concomitant]
     Indication: VITAMIN SUPPLEMENTATION
     Dosage: 5 ML DAILY
     Route: 042
     Dates: start: 20110617, end: 20110624
  87. K-CONTIN CONTINUS [Concomitant]
     Dosage: 1800 MG DAILY
     Dates: start: 20111013, end: 20111013
  88. SINIL THIAMINE HCL [Concomitant]
     Indication: VITAMIN SUPPLEMENTATION
     Route: 042
     Dates: start: 20110812
  89. SINIL THIAMINE HCL [Concomitant]
     Dosage: 30 MG DAILY
     Dates: start: 20110907
  90. PHENIRAMINE [Concomitant]
     Route: 042
     Dates: start: 20110525, end: 20110525
  91. TRODOL [Concomitant]
     Indication: B-CELL LYMPHOMA
  92. CJ SODIUM CHLORIDE [Concomitant]
     Dosage: 2 VIALS, 2.34G/ML
     Route: 042
     Dates: start: 20110911, end: 20110913
  93. PLATELETS, CONCENTRATED [Concomitant]
     Dosage: 8 PACK
     Route: 042
     Dates: start: 20111002, end: 20111002
  94. K-CONTIN CONTINUS [Concomitant]
     Dosage: 5.4 GRAM DAILY
     Route: 048
     Dates: start: 20110927, end: 20110928
  95. ABACAVIR [Concomitant]
     Indication: ANTIRETROVIRAL THERAPY
     Dosage: 600 MG DAILY
     Dates: start: 20110328, end: 20110728
  96. DAIHAN POTASSUIM CHOLORIDE [Concomitant]
     Dosage: 40INJ 3G/20ML, 1MG DAILY
     Route: 042
     Dates: start: 20111028, end: 20111104
  97. PHENIRAMINE [Concomitant]
     Indication: PREMEDICATION
     Dosage: 4MG/2ML 2ML
     Route: 042
     Dates: start: 20110530, end: 20110530
  98. SEPTRA [Concomitant]
     Indication: PROPHYLAXIS
     Dosage: 1 TAB DAILY
     Route: 048
     Dates: start: 20110328, end: 20110525
  99. SEPTRA [Concomitant]
     Indication: PNEUMOCYSTIS JIROVECI PNEUMONIA
  100. GREENCROSS ALBUMIN [Concomitant]
     Dosage: 0.2G/ML,  DAILY DOSE 100ML100ML
     Route: 042
     Dates: start: 20111002, end: 20111002
  101. GREENCROSS ALBUMIN [Concomitant]
     Dosage: 20% 0.2G/ML  DAILY DOSE 100ML
     Route: 042
     Dates: start: 20111004, end: 20111005
  102. TAMIPOOL [Concomitant]
     Dosage: TOTALY DAILY DOSE 1 AMP
     Route: 042
     Dates: start: 20111001, end: 20111001
  103. TAMIPOOL [Concomitant]
     Dosage: 1 VIAL
     Route: 042
     Dates: start: 20111006, end: 20111006
  104. K-CONTIN CONTINUS [Concomitant]
     Dosage: 1800 MG DAILY
     Route: 048
     Dates: start: 20110902, end: 20110902
  105. DAEWON MEGESTEROL ACETATE SUSPENSION [Concomitant]
     Indication: DECREASED APPETITE
     Dosage: 1 PACK
     Route: 048
     Dates: start: 20110806
  106. TRODOL [Concomitant]
     Indication: CANCER PAIN
     Dosage: 150 MG DAILY, 50MG/ML 1 ML
     Route: 042
     Dates: start: 20110815, end: 20110826
  107. CJ SODIUM CHLORIDE [Concomitant]
     Indication: ELECTROLYTE SUBSTITUTION THERAPY
     Dosage: 2 VIALS, 2.34G/20ML
     Route: 042
     Dates: start: 20110822, end: 20110830
  108. TRIDEL [Concomitant]
     Indication: CANCER PAIN
     Dosage: 150 MG DAILY
     Route: 048
     Dates: start: 20110826, end: 20110829
  109. PLATELETS, CONCENTRATED [Concomitant]
     Indication: PLATELET DISORDER
     Dosage: SEVEN PACK
     Route: 042
     Dates: start: 20110915, end: 20110916
  110. PLATELETS, CONCENTRATED [Concomitant]
     Dosage: 8 PACK
     Route: 042
     Dates: start: 20111010, end: 20111010
  111. MACPERAN [Concomitant]
     Dosage: 8.46 MG/2 ML, 30 MG DAILY
     Dates: start: 20111004, end: 20111004
  112. PENIRAMINE [Concomitant]
     Indication: BLOOD ALBUMIN DECREASED
     Dosage: 4MG/2ML 2ML, 4MG DAILY
     Route: 042
     Dates: start: 20111006, end: 20111006
  113. PENIRAMINE [Concomitant]
     Dosage: 4MG/2ML 2ML, 4MG DAILY
     Dates: start: 20110915, end: 20110916
  114. PENIRAMINE [Concomitant]
     Dosage: 4MG/2ML 2ML, 4MG DAILY
     Dates: start: 20110919, end: 20110919
  115. KALETRA [Suspect]
     Indication: HIV INFECTION
     Dosage: 2 TABS, TWICE A DAY
     Dates: start: 20110518, end: 20110616
  116. LAMIVUDINE (EPIVIR HBV) [Concomitant]
     Dosage: 300 MG DAILY
     Dates: start: 20110819
  117. DAIHAN POTASSUIM CHOLORIDE [Concomitant]
     Indication: MINERAL SUPPLEMENTATION
     Dosage: 40INJ 3G/20ML
     Route: 042
     Dates: start: 20110531, end: 20110604
  118. DAIHAN POTASSUIM CHOLORIDE [Concomitant]
     Dosage: 40INJ 3G/20ML, DAILY 1 AMPOULE
     Route: 042
     Dates: start: 20111005, end: 20111005
  119. MABTHERA [Concomitant]
     Indication: B-CELL LYMPHOMA
     Dosage: 10MG/ML 50ML, 100 ML DAILY
     Route: 042
     Dates: start: 20110525, end: 20110525
  120. SEPTRA [Concomitant]
     Dosage: 1 TAB DAILY
     Route: 048
     Dates: start: 20110713, end: 20110720
  121. K-CONTIN CONTINUS [Concomitant]
     Dosage: 3600 MG DAILY DOSE
     Route: 048
     Dates: start: 20110803, end: 20110810
  122. CJ SODIUM CHLORIDE [Concomitant]
     Dosage: 3 VIALS, 2.34G/20ML
     Route: 042
     Dates: start: 20110923
  123. PACKED RED CELL [Concomitant]
     Indication: HAEMOGLOBIN ABNORMAL
     Dosage: TWO PACK, 400CC
     Route: 042
     Dates: start: 20110915, end: 20110915
  124. PLATELETS, CONCENTRATED [Concomitant]
     Dosage: EIGHT PACK
     Route: 042
     Dates: start: 20110923
  125. PLATELETS, CONCENTRATED [Concomitant]
     Dosage: TOTAL DAILY DOSE 8 PACK
     Route: 042
     Dates: start: 20110929, end: 20110929
  126. PLATELETS, CONCENTRATED [Concomitant]
     Dosage: (PHERESIS) 1 PACK
     Route: 042
     Dates: start: 20111004, end: 20111004
  127. PLATELETS, CONCENTRATED [Concomitant]
     Dosage: 8 PACK
     Route: 042
     Dates: start: 20111025, end: 20111025
  128. MEROPENEM [Concomitant]
     Indication: PROPHYLAXIS
     Dosage: 500MG/V, TOTAL DAILY DOSE 3G
     Route: 042
     Dates: start: 20111002, end: 20111015
  129. KALETRA [Suspect]
     Dosage: 2 TABS, TWICE A DAY
     Dates: start: 20110713, end: 20110728
  130. RALTEGRAVIR [Concomitant]
     Dates: start: 20111027
  131. BEARSE [Concomitant]
     Indication: PROPHYLAXIS
     Dosage: 3 TABS DAILY
     Route: 048
     Dates: start: 20110524, end: 20110524
  132. MACPERAN [Concomitant]
     Route: 048
     Dates: start: 20110616, end: 20110618
  133. DAIHAN POTASSUIM CHOLORIDE [Concomitant]
     Indication: CHEMOTHERAPY
     Dosage: 40INJ 3G/20ML
     Route: 042
     Dates: start: 20110721, end: 20110724
  134. DAIHAN POTASSUIM CHOLORIDE [Concomitant]
     Dosage: 3G/20ML, TOTAL DAILY DOSE 2 AMP
     Route: 042
     Dates: start: 20110927, end: 20110929
  135. DAIHAN POTASSUIM CHOLORIDE [Concomitant]
     Dosage: 40INJ 3G/20ML, DAILY 2 AMPOULES
     Route: 042
     Dates: start: 20111027, end: 20111027
  136. PHENIRAMINE [Concomitant]
     Indication: PLATELET TRANSFUSION
     Dosage: 4MG/2ML 2ML
     Route: 042
     Dates: start: 20110609, end: 20110611
  137. RABEPRAZOLE SODIUM [Concomitant]
     Indication: GASTRIC ULCER
     Dosage: 10 MG DAILY
     Route: 048
     Dates: start: 20110525, end: 20110525
  138. MVH [Concomitant]
     Dosage: 5 ML DAILY
     Route: 042
     Dates: start: 20110630, end: 20110704
  139. K-CONTIN CONTINUS [Concomitant]
     Dosage: 3600 MG DAILY
     Dates: start: 20110905, end: 20110907
  140. PENIRAMINE [Concomitant]
     Dosage: 4MG/2ML 2ML, 4MG DAILY
     Route: 042
     Dates: start: 20111031, end: 20111031

REACTIONS (17)
  - DEPRESSED MOOD [None]
  - DIARRHOEA [None]
  - DELIRIUM [None]
  - NEUTROPENIA [None]
  - CYTOMEGALOVIRUS COLITIS [None]
  - OSTEOPOROSIS [None]
  - ANAEMIA [None]
  - PNEUMOTHORAX [None]
  - HYPONATRAEMIA [None]
  - HYPERBILIRUBINAEMIA [None]
  - IMMUNE RECONSTITUTION SYNDROME [None]
  - JAUNDICE [None]
  - HERPES ZOSTER [None]
  - PNEUMONIA FUNGAL [None]
  - SHOCK [None]
  - URINARY TRACT INFECTION [None]
  - AIDS ENCEPHALOPATHY [None]
